FAERS Safety Report 20620941 (Version 1)
Quarter: 2022Q1

REPORT INFORMATION
  Report Type: Spontaneous
  Country: US (occurrence: US)
  Receive Date: 20220322
  Receipt Date: 20220322
  Transmission Date: 20220424
  Serious: No
  Sender: FDA-Public Use
  Company Number: US-drreddys-SPO/USA/22/0147710

PATIENT
  Age: 16 Year
  Sex: Female

DRUGS (1)
  1. ZENATANE [Suspect]
     Active Substance: ISOTRETINOIN
     Indication: Product used for unknown indication
     Dosage: 4/JUNE/2020, 24/JULY/2020/ 5/OCTOBER/2020
     Dates: start: 20200601, end: 20210521

REACTIONS (2)
  - Drug ineffective [Unknown]
  - Product quality issue [Unknown]
